FAERS Safety Report 23566856 (Version 1)
Quarter: 2024Q1

REPORT INFORMATION
  Report Type: Spontaneous
  Country: US (occurrence: US)
  Receive Date: 20240226
  Receipt Date: 20240226
  Transmission Date: 20240410
  Serious: No
  Sender: FDA-Public Use
  Company Number: US-AMNEAL PHARMACEUTICALS-2023-AMRX-02488

PATIENT
  Sex: Female

DRUGS (4)
  1. RYTARY [Suspect]
     Active Substance: CARBIDOPA\LEVODOPA
     Indication: Product used for unknown indication
     Dosage: 10 CAPSULES DAILY
     Route: 048
  2. RYTARY [Suspect]
     Active Substance: CARBIDOPA\LEVODOPA
     Dosage: TAKE 2 CAPSULES BY MOUTH THREE TIMES A DAY AT6:30AM,3:30PM,9:30PM, 1 CAPSULE THREE TIMES A DAY AT 9:
     Route: 048
  3. RYTARY [Suspect]
     Active Substance: CARBIDOPA\LEVODOPA
     Dosage: TAKE 01 CAPSULES BY MOUTH THREE TIMES A DAY AT6:30AM,3:30PM,9:30PM, 1 CAPSULE THREE TIMES A DAY AT 9
     Route: 048
     Dates: start: 20240103
  4. RYTARY [Suspect]
     Active Substance: CARBIDOPA\LEVODOPA
     Dosage: 48.75-195 MG-01 CAPSULE BY MOUTH FIVE TIMES A DAY
     Route: 048
     Dates: start: 20240117

REACTIONS (1)
  - Tremor [Unknown]
